FAERS Safety Report 12632633 (Version 2)
Quarter: 2016Q3

REPORT INFORMATION
  Report Type: Spontaneous
  Country: US (occurrence: US)
  Receive Date: 20160808
  Receipt Date: 20160808
  Transmission Date: 20161109
  Serious: No
  Sender: FDA-Public Use
  Company Number: US-BEH-2015056299

PATIENT
  Sex: Female
  Weight: 60 kg

DRUGS (24)
  1. BIOTIN [Concomitant]
     Active Substance: BIOTIN
  2. HIZENTRA [Suspect]
     Active Substance: HUMAN IMMUNOGLOBULIN G
     Indication: SELECTIVE IGG SUBCLASS DEFICIENCY
     Route: 058
  3. EPIPEN [Concomitant]
     Active Substance: EPINEPHRINE
  4. BACLOFEN. [Concomitant]
     Active Substance: BACLOFEN
  5. CYMBALTA [Concomitant]
     Active Substance: DULOXETINE HYDROCHLORIDE
  6. SINGULAIR [Concomitant]
     Active Substance: MONTELUKAST SODIUM
  7. HIZENTRA [Suspect]
     Active Substance: HUMAN IMMUNOGLOBULIN G
     Route: 058
  8. WELLBUTRIN SR [Concomitant]
     Active Substance: BUPROPION HYDROCHLORIDE
  9. L-M-X [Concomitant]
  10. CELEBREX [Concomitant]
     Active Substance: CELECOXIB
  11. TRAZODONE [Concomitant]
     Active Substance: TRAZODONE HYDROCHLORIDE
  12. IBUPROFEN. [Concomitant]
     Active Substance: IBUPROFEN
  13. ESTRADIOL. [Concomitant]
     Active Substance: ESTRADIOL
  14. PROGESTERONE. [Concomitant]
     Active Substance: PROGESTERONE
  15. KLONOPIN [Concomitant]
     Active Substance: CLONAZEPAM
  16. NEURONTIN [Concomitant]
     Active Substance: GABAPENTIN
  17. ESTROGENS [Concomitant]
     Active Substance: ESTROGENS
  18. VITAMIN C [Concomitant]
     Active Substance: ASCORBIC ACID
  19. HIZENTRA [Suspect]
     Active Substance: HUMAN IMMUNOGLOBULIN G
     Route: 058
  20. ADDERALL XR [Concomitant]
     Active Substance: AMPHETAMINE ASPARTATE\AMPHETAMINE SULFATE\DEXTROAMPHETAMINE SACCHARATE\DEXTROAMPHETAMINE SULFATE
  21. ANDROGENS AND FEMALE SEX HORMONES IN COMB [Concomitant]
  22. ACETAMINOPHEN. [Concomitant]
     Active Substance: ACETAMINOPHEN
  23. DIPHENHYDRAMINE. [Concomitant]
     Active Substance: DIPHENHYDRAMINE
  24. BYSTOLIC [Concomitant]
     Active Substance: NEBIVOLOL HYDROCHLORIDE

REACTIONS (1)
  - Sinusitis [Unknown]
